FAERS Safety Report 14549295 (Version 2)
Quarter: 2018Q2

REPORT INFORMATION
  Report Type: Spontaneous
  Country: JP (occurrence: JP)
  Receive Date: 20180219
  Receipt Date: 20180425
  Transmission Date: 20180711
  Serious: Yes (Other)
  Sender: FDA-Public Use
  Company Number: JP-ELI_LILLY_AND_COMPANY-JP201511006520

PATIENT
  Sex: Male

DRUGS (1)
  1. ZYPREXA [Suspect]
     Active Substance: OLANZAPINE
     Indication: SCHIZOPHRENIA
     Dosage: 20 MG, UNK
     Route: 048

REACTIONS (9)
  - Hallucination [Unknown]
  - Drug ineffective [Unknown]
  - Restless legs syndrome [Unknown]
  - Increased appetite [Unknown]
  - Weight increased [Unknown]
  - Bruxism [Unknown]
  - Hallucination, auditory [Unknown]
  - Intentional self-injury [Unknown]
  - Suicide attempt [Unknown]
